FAERS Safety Report 5902729-2 (Version None)
Quarter: 2008Q3

REPORT INFORMATION
  Report Type: 
  Country: None (occurrence: None)
  Receive Date: 20080929
  Receipt Date: 20080929
  Transmission Date: 20090109
  Serious: Yes (Other)
  Sender: FDA-Public Use
  Company Number: None

PATIENT
  Age: 34 Year
  Sex: Female
  Weight: 58.9676 kg

DRUGS (2)
  1. VOLTAREN [Suspect]
     Indication: INTERVERTEBRAL DISC PROTRUSION
     Dosage: 2 MG 2X DAY TOP
     Route: 061
     Dates: start: 20080911, end: 20080926
  2. VOLTAREN [Suspect]
     Indication: MYOFASCIAL PAIN SYNDROME
     Dosage: 2 MG 2X DAY TOP
     Route: 061
     Dates: start: 20080911, end: 20080926

REACTIONS (1)
  - URTICARIA [None]
